FAERS Safety Report 6931379-4 (Version None)
Quarter: 2010Q3

REPORT INFORMATION
  Report Type: 
  Country: None (occurrence: None)
  Receive Date: 20100819
  Receipt Date: 20100212
  Transmission Date: 20110219
  Serious: No
  Sender: FDA-Public Use
  Company Number: US-BRISTOL-MYERS SQUIBB COMPANY-14977300

PATIENT

DRUGS (1)
  1. ZERIT [Suspect]

REACTIONS (1)
  - CREATININE RENAL CLEARANCE DECREASED [None]
